FAERS Safety Report 19856099 (Version 1)
Quarter: 2021Q3

REPORT INFORMATION
  Report Type: Spontaneous
  Country: GB (occurrence: GB)
  Receive Date: 20210920
  Receipt Date: 20210920
  Transmission Date: 20211014
  Serious: Yes (Other)
  Sender: FDA-Public Use
  Company Number: GB-TEVA-2021-GB-1953599

PATIENT
  Age: 78 Year
  Sex: Male
  Weight: 81.64 kg

DRUGS (6)
  1. TAMSULOSIN [Concomitant]
     Active Substance: TAMSULOSIN
  2. FINASTERIDE. [Concomitant]
     Active Substance: FINASTERIDE
  3. MULTIVITAMIN [Concomitant]
     Active Substance: VITAMINS
  4. SOLIFENACIN SUCCINATE. [Suspect]
     Active Substance: SOLIFENACIN SUCCINATE
     Indication: NOCTURIA
     Dosage: 10 MILLIGRAM DAILY;
     Route: 048
     Dates: start: 20210721, end: 20210816
  5. AMITRIPTYLINE [Concomitant]
     Active Substance: AMITRIPTYLINE
     Dosage: 5 MILLIGRAM DAILY;
  6. OMEPRAZOLE. [Concomitant]
     Active Substance: OMEPRAZOLE

REACTIONS (2)
  - Atrial fibrillation [Recovered/Resolved]
  - Heart rate abnormal [Unknown]

NARRATIVE: CASE EVENT DATE: 20210813
